FAERS Safety Report 8054383-4 (Version None)
Quarter: 2012Q1

REPORT INFORMATION
  Report Type: 
  Country: None (occurrence: None)
  Receive Date: 20120118
  Receipt Date: 20120116
  Transmission Date: 20120608
  Serious: Yes (Other)
  Sender: FDA-Public Use
  Company Number: PHFR2011IE04904

PATIENT
  Sex: Female

DRUGS (2)
  1. CLOZARIL [Suspect]
     Dosage: 225 MG, DAILY
     Route: 048
     Dates: start: 20100303
  2. FUROSEMIDE [Concomitant]
     Dosage: 20 MG, DAILY

REACTIONS (3)
  - URINARY INCONTINENCE [None]
  - KIDNEY INFECTION [None]
  - URINARY TRACT INFECTION [None]
